FAERS Safety Report 9850257 (Version 1)
Quarter: 2014Q1

REPORT INFORMATION
  Report Type: Spontaneous
  Country: GB (occurrence: GB)
  Receive Date: 20140128
  Receipt Date: 20140128
  Transmission Date: 20141002
  Serious: Yes (Other)
  Sender: FDA-Public Use
  Company Number: PHHY2014GB008109

PATIENT
  Sex: 0

DRUGS (1)
  1. OMEPRAZOLE [Suspect]
     Dosage: 10 MG, UNK
     Route: 048

REACTIONS (1)
  - Choking [Not Recovered/Not Resolved]
